FAERS Safety Report 8809301 (Version 1)
Quarter: 2012Q4

REPORT INFORMATION
  Report Type: Spontaneous
  Country: US (occurrence: None)
  Receive Date: 20120924
  Receipt Date: 20120924
  Transmission Date: 20130627
  Serious: Yes (Other)
  Sender: FDA-Public Use
  Company Number: None

PATIENT
  Sex: Female
  Weight: 56.7 kg

DRUGS (1)
  1. LETROZOLE [Suspect]
     Indication: BREAST CANCER
     Dosage: 2.5   1 a day  mouth
     Route: 048
     Dates: start: 201209, end: 201209

REACTIONS (8)
  - Blood pressure increased [None]
  - Pain in extremity [None]
  - Musculoskeletal stiffness [None]
  - Heart rate irregular [None]
  - Musculoskeletal stiffness [None]
  - Musculoskeletal stiffness [None]
  - Musculoskeletal pain [None]
  - Neck pain [None]
